FAERS Safety Report 24867806 (Version 1)
Quarter: 2025Q1

REPORT INFORMATION
  Report Type: Spontaneous
  Country: BR (occurrence: BR)
  Receive Date: 20250121
  Receipt Date: 20250121
  Transmission Date: 20250409
  Serious: Yes (Hospitalization, Other)
  Sender: Norvium Bioscience
  Company Number: BR-Norvium Bioscience LLC-079792

PATIENT
  Age: 45 Year
  Sex: Female

DRUGS (1)
  1. ZOLPIDEM TARTRATE [Suspect]
     Active Substance: ZOLPIDEM TARTRATE
     Indication: Sleep disorder
     Route: 048

REACTIONS (10)
  - Drug dependence [Not Recovered/Not Resolved]
  - Stillbirth [Unknown]
  - Maternal exposure during pregnancy [Unknown]
  - Somnolence [Unknown]
  - Dissociative disorder [Unknown]
  - Fall [Unknown]
  - Amnesia [Unknown]
  - Disturbance in attention [Unknown]
  - Drug tolerance [Unknown]
  - Social problem [Unknown]
